FAERS Safety Report 6394073-7 (Version None)
Quarter: 2009Q4

REPORT INFORMATION
  Report Type: 
  Country: None (occurrence: None)
  Receive Date: 20091008
  Receipt Date: 20090520
  Transmission Date: 20100525
  Serious: Yes (Other)
  Sender: FDA-Public Use
  Company Number: BR-PFIZER INC-2009216614

PATIENT
  Age: 67 Year

DRUGS (7)
  1. FIBRASE [Suspect]
     Indication: PROMOTION OF WOUND HEALING
     Dosage: UNK
     Route: 003
  2. NIFEDIPINE [Concomitant]
     Dosage: UNK MBQ, UNK
     Dates: start: 20040101
  3. CAPTOPRIL [Concomitant]
     Dosage: UNK
     Dates: start: 20040101
  4. FUROSEMID [Concomitant]
     Dosage: UNK
     Dates: start: 20040101
  5. CATAFLAM [Concomitant]
     Dosage: 200 MG, DAILY
  6. FERROUS SULFATE [Concomitant]
     Dosage: UNK
  7. FOLIC ACID [Concomitant]
     Dosage: UNK

REACTIONS (1)
  - WOUND INFECTION [None]
